FAERS Safety Report 5572788-8 (Version None)
Quarter: 2007Q4

REPORT INFORMATION
  Report Type: 
  Country: None (occurrence: None)
  Receive Date: 20071223
  Receipt Date: 20071214
  Transmission Date: 20080405
  Serious: Yes (Hospitalization, Other)
  Sender: FDA-Public Use
  Company Number: PHBS2007JP21064

PATIENT
  Age: 63 Year
  Sex: Female

DRUGS (5)
  1. MEVALOTIN [Concomitant]
  2. RABEPRAZOLE SODIUM [Concomitant]
  3. GASMOTIN [Concomitant]
  4. PRIMPERAN INJ [Concomitant]
  5. DIOVAN [Suspect]
     Dosage: 80 MG, QD
     Route: 048
     Dates: start: 20071128

REACTIONS (3)
  - ASTHMA [None]
  - CEREBRAL INFARCTION [None]
  - COMPUTERISED TOMOGRAM ABNORMAL [None]
